FAERS Safety Report 7224658-7 (Version None)
Quarter: 2011Q1

REPORT INFORMATION
  Report Type: 
  Country: None (occurrence: None)
  Receive Date: 20110113
  Receipt Date: 20110105
  Transmission Date: 20110831
  Serious: Yes (Hospitalization)
  Sender: FDA-Public Use
  Company Number: US-NOVOPROD-321266

PATIENT
  Sex: Female
  Weight: 73.923 kg

DRUGS (3)
  1. NORDITROPIN NORDIFLEX [Suspect]
     Indication: POST PROCEDURAL COMPLICATION
     Dosage: UNK
     Route: 058
     Dates: start: 20090101
  2. SYNTHROID [Concomitant]
     Indication: HYPOTHYROIDISM
     Dosage: UNK
  3. HIDROCORTISON [Concomitant]
     Indication: PRODUCT USED FOR UNKNOWN INDICATION
     Dosage: UNK

REACTIONS (1)
  - PHARYNGITIS STREPTOCOCCAL [None]
